FAERS Safety Report 9031765 (Version 2)
Quarter: 2025Q4

REPORT INFORMATION
  Report Type: Spontaneous
  Country: EU (occurrence: EU)
  Receive Date: 20130124
  Receipt Date: 20251014
  Transmission Date: 20260118
  Serious: Yes (Hospitalization, Other)
  Sender: PFIZER
  Company Number: EU-PFIZER INC-2013019048

PATIENT
  Age: 49 Year
  Sex: Female

DRUGS (3)
  1. LINEZOLID [Suspect]
     Active Substance: LINEZOLID
     Dosage: 600 MG, BID
     Route: 048
  2. CEFTAZIDIME [Concomitant]
     Active Substance: CEFTAZIDIME
     Dosage: 2 G, 2X/DAY
  3. IMIPENEM [Concomitant]
     Active Substance: IMIPENEM
     Dosage: 1 G, 3X/DAY

REACTIONS (1)
  - Bradycardia [Recovered/Resolved]
